FAERS Safety Report 9920010 (Version 2)
Quarter: 2014Q2

REPORT INFORMATION
  Report Type: Report from Study
  Country: JP (occurrence: JP)
  Receive Date: 20140224
  Receipt Date: 20140501
  Transmission Date: 20141212
  Serious: No
  Sender: FDA-Public Use
  Company Number: JP-ABBVIE-14P-087-1204931-00

PATIENT
  Age: 68 Year
  Sex: Male

DRUGS (3)
  1. LIPACREON CAPSULES 150MG [Suspect]
     Indication: PANCREATIC INSUFFICIENCY
     Route: 048
     Dates: start: 20130307
  2. GIMERACIL W/OTERACIL POTASSIUM/TEGAFUR [Suspect]
     Indication: NEOPLASM MALIGNANT
     Route: 048
     Dates: start: 20130321
  3. ESOMEPRAZOLE MAGNESIUM [Concomitant]
     Indication: GASTROOESOPHAGEAL REFLUX DISEASE
     Route: 048

REACTIONS (2)
  - Anaemia [Recovering/Resolving]
  - Dysgeusia [Recovered/Resolved]
